FAERS Safety Report 11249467 (Version 1)
Quarter: 2015Q3

REPORT INFORMATION
  Report Type: Spontaneous
  Country: US (occurrence: US)
  Receive Date: 20150708
  Receipt Date: 20150708
  Transmission Date: 20151125
  Serious: No
  Sender: FDA-Public Use
  Company Number: US-ELI_LILLY_AND_COMPANY-US201004007935

PATIENT
  Age: 56 Year
  Sex: Female
  Weight: 73.02 kg

DRUGS (7)
  1. CARBOPLATIN. [Concomitant]
     Active Substance: CARBOPLATIN
     Dosage: 500 MG, OTHER
     Route: 042
     Dates: start: 201002
  2. VITAMIN B12 [Concomitant]
     Active Substance: CYANOCOBALAMIN
     Dosage: 1000 UG, UNK
     Route: 030
     Dates: start: 20100115
  3. FOLIC ACID. [Concomitant]
     Active Substance: FOLIC ACID
     Route: 048
     Dates: start: 201001
  4. ALIMTA [Suspect]
     Active Substance: PEMETREXED DISODIUM
     Indication: NON-SMALL CELL LUNG CANCER
     Dosage: 900 MG, UNK
     Route: 042
     Dates: start: 20100210, end: 20100324
  5. ALIMTA [Suspect]
     Active Substance: PEMETREXED DISODIUM
     Dosage: 900 MG, UNK
     Route: 042
  6. AVASTIN [Concomitant]
     Active Substance: BEVACIZUMAB
     Dosage: 1000 MG, OTHER
     Route: 042
     Dates: start: 20100324
  7. DILANTIN [Concomitant]
     Active Substance: PHENYTOIN

REACTIONS (1)
  - Orbital oedema [Recovering/Resolving]
